FAERS Safety Report 9724494 (Version 1)
Quarter: 2013Q4

REPORT INFORMATION
  Report Type: Report from Study
  Country: US (occurrence: US)
  Receive Date: 20131202
  Receipt Date: 20131202
  Transmission Date: 20140711
  Serious: Yes (Hospitalization, Other)
  Sender: FDA-Public Use
  Company Number: US-PFIZER INC-2013339003

PATIENT
  Age: 43 Year
  Sex: Male

DRUGS (3)
  1. ADVIL [Suspect]
     Dosage: UNK
  2. COPAXONE [Suspect]
     Indication: MULTIPLE SCLEROSIS
     Dosage: UNK
     Dates: start: 20130919
  3. ALEVE [Suspect]
     Dosage: UNK

REACTIONS (12)
  - Gastrointestinal haemorrhage [Unknown]
  - Haemoglobin decreased [Unknown]
  - Red blood cell count decreased [Unknown]
  - Convulsion [Recovered/Resolved]
  - Loss of consciousness [Recovered/Resolved]
  - Dyspepsia [Unknown]
  - Gastrooesophageal reflux disease [Unknown]
  - Chest pain [Unknown]
  - Visual impairment [Unknown]
  - Dizziness [Unknown]
  - Balance disorder [Unknown]
  - Drug ineffective [Unknown]
